FAERS Safety Report 4871012-9 (Version None)
Quarter: 2005Q4

REPORT INFORMATION
  Report Type: 
  Country: None (occurrence: None)
  Receive Date: 20051115
  Receipt Date: 20050727
  Transmission Date: 20060501
  Serious: Yes (Hospitalization)
  Sender: FDA-Public Use
  Company Number: 406619

PATIENT
  Age: 45 Year
  Sex: Female

DRUGS (6)
  1. PEGASYS [Suspect]
     Indication: HEPATITIS C VIRUS
     Dosage: 180 MCG 1 PER WEEK OTHER
     Dates: start: 20050331, end: 20050723
  2. COPEGUS [Suspect]
     Indication: HEPATITIS C VIRUS
     Dosage: 2 DOSE FORM 2 PER DAY ORAL
     Route: 048
     Dates: start: 20050331, end: 20050723
  3. ESTROSTEP (ETHINYL ESTRADIOL/NORETHINDRONE ACETATE) [Concomitant]
  4. XANAX [Concomitant]
  5. ZELNORM [Concomitant]
  6. HYOSCYAMINE (HYOSCYAMINE) [Concomitant]

REACTIONS (9)
  - ABDOMINAL PAIN [None]
  - ASTHENIA [None]
  - CHEST PAIN [None]
  - DEHYDRATION [None]
  - DIARRHOEA [None]
  - DIZZINESS [None]
  - DYSPNOEA [None]
  - OEDEMA PERIPHERAL [None]
  - WHITE BLOOD CELL COUNT DECREASED [None]
